FAERS Safety Report 23808680 (Version 3)
Quarter: 2025Q3

REPORT INFORMATION
  Report Type: Spontaneous
  Country: BR (occurrence: BR)
  Receive Date: 20240502
  Receipt Date: 20250818
  Transmission Date: 20251020
  Serious: Yes (Other)
  Sender: SANDOZ
  Company Number: BR-002147023-NVSC2021BR155661

PATIENT
  Age: 61 Year
  Sex: Female

DRUGS (12)
  1. ANASTROZOLE [Suspect]
     Active Substance: ANASTROZOLE
     Indication: Product used for unknown indication
     Route: 065
     Dates: start: 2017
  2. FULVESTRANT [Suspect]
     Active Substance: FULVESTRANT
     Indication: Product used for unknown indication
     Route: 065
     Dates: start: 20201206
  3. FULVESTRANT [Suspect]
     Active Substance: FULVESTRANT
     Route: 065
     Dates: start: 202012
  4. FULVESTRANT [Suspect]
     Active Substance: FULVESTRANT
     Route: 065
  5. KISQALI [Suspect]
     Active Substance: RIBOCICLIB SUCCINATE
     Route: 065
     Dates: start: 20201217
  6. KISQALI [Suspect]
     Active Substance: RIBOCICLIB SUCCINATE
     Indication: Breast neoplasm
     Route: 048
     Dates: start: 202012
  7. KISQALI [Suspect]
     Active Substance: RIBOCICLIB SUCCINATE
     Route: 065
     Dates: start: 20201212
  8. KISQALI [Suspect]
     Active Substance: RIBOCICLIB SUCCINATE
     Dosage: QD (3 TABLETS)
     Route: 065
  9. KISQALI [Suspect]
     Active Substance: RIBOCICLIB SUCCINATE
     Route: 065
     Dates: start: 20201217
  10. ZOMETA [Suspect]
     Active Substance: ZOLEDRONIC ACID
     Indication: Heparin-induced thrombocytopenia
     Dosage: UNK, Q3MO
     Route: 042
     Dates: start: 20240415
  11. ZOMETA [Suspect]
     Active Substance: ZOLEDRONIC ACID
     Route: 065
  12. GLIFAGE [Concomitant]
     Active Substance: METFORMIN HYDROCHLORIDE
     Indication: Diabetes mellitus
     Route: 065

REACTIONS (33)
  - Metastases to bone [Unknown]
  - Metastasis [Unknown]
  - Skin fissures [Unknown]
  - Skin discolouration [Recovering/Resolving]
  - Pruritus [Not Recovered/Not Resolved]
  - Pigmentation disorder [Recovering/Resolving]
  - Osteoporosis [Unknown]
  - Movement disorder [Unknown]
  - Pain in extremity [Recovered/Resolved]
  - Muscle discomfort [Unknown]
  - Gait disturbance [Unknown]
  - Shoulder fracture [Recovered/Resolved]
  - Arthralgia [Unknown]
  - Neoplasm [Unknown]
  - Fasciitis [Unknown]
  - Eye disorder [Unknown]
  - Drug hypersensitivity [Recovered/Resolved]
  - Visual impairment [Not Recovered/Not Resolved]
  - Condition aggravated [Unknown]
  - Dry skin [Unknown]
  - Dry eye [Unknown]
  - Dry mouth [Recovering/Resolving]
  - Sneezing [Recovered/Resolved]
  - Nasal congestion [Recovered/Resolved]
  - Sluggishness [Recovered/Resolved]
  - Influenza [Unknown]
  - Tendonitis [Unknown]
  - Sciatica [Unknown]
  - Dyskinesia [Unknown]
  - Oropharyngeal pain [Recovered/Resolved]
  - Nasopharyngitis [Recovered/Resolved]
  - Drug ineffective [Unknown]
  - Product use in unapproved indication [Unknown]

NARRATIVE: CASE EVENT DATE: 20201001
